FAERS Safety Report 8883222 (Version 1)
Quarter: 2012Q4

REPORT INFORMATION
  Report Type: 
  Country: FR (occurrence: FR)
  Receive Date: 20121102
  Receipt Date: 20121102
  Transmission Date: 20130627
  Serious: Yes (Hospitalization)
  Sender: FDA-Public Use
  Company Number: PHHY2012FR098818

PATIENT
  Sex: Female

DRUGS (5)
  1. TEGRETOL LP [Suspect]
     Indication: EPILEPSY
     Dosage: 800 mg, daily
     Route: 048
  2. VALPROATE SODIUM [Suspect]
     Indication: EPILEPSY
     Dosage: 1000 mg, BID
     Route: 048
  3. MODURETIC [Suspect]
     Dosage: 2 DF, daily
     Route: 048
  4. SABRIL [Concomitant]
  5. DIAZEPAM [Concomitant]

REACTIONS (5)
  - Abnormal behaviour [Recovered/Resolved]
  - Agitation [Unknown]
  - Crying [Unknown]
  - Vomiting [Recovered/Resolved]
  - Hyponatraemia [Recovered/Resolved]
